FAERS Safety Report 6357227-1 (Version None)
Quarter: 2009Q3

REPORT INFORMATION
  Report Type: 
  Country: None (occurrence: None)
  Receive Date: 20090911
  Receipt Date: 20090814
  Transmission Date: 20100115
  Serious: Yes (Hospitalization)
  Sender: FDA-Public Use
  Company Number: CIP09002244

PATIENT
  Age: 18 Year
  Sex: Male

DRUGS (1)
  1. ASACOL [Suspect]
     Indication: COLITIS ULCERATIVE
     Dosage: 4800 MG DAILY, ORAL; 4800 MG, DAILY
     Route: 048

REACTIONS (3)
  - CARDIOMYOPATHY [None]
  - FALL [None]
  - MALAISE [None]
